FAERS Safety Report 8759661 (Version 3)
Quarter: 2012Q4

REPORT INFORMATION
  Report Type: 
  Country: US (occurrence: US)
  Receive Date: 20120829
  Receipt Date: 20121114
  Transmission Date: 20130627
  Serious: Yes (Hospitalization)
  Sender: FDA-Public Use
  Company Number: US-009507513-1208USA009396

PATIENT
  Age: 65 Year
  Sex: Male
  Weight: 108.84 kg

DRUGS (11)
  1. ZOCOR [Suspect]
     Indication: BLOOD CHOLESTEROL ABNORMAL
     Dosage: 80 mg, qd
     Route: 048
     Dates: start: 1999
  2. DEPAKOTE [Concomitant]
     Indication: MIGRAINE
     Dosage: UNK
  3. DILTIAZEM HYDROCHLORIDE [Concomitant]
     Indication: HYPERTENSION
     Dosage: UNK
  4. URECHOLINE [Concomitant]
     Indication: BLADDER DISORDER
     Dosage: UNK
  5. PROPECIA [Concomitant]
     Dosage: UNK
     Route: 048
  6. LISINOPRIL [Concomitant]
     Indication: HYPERTENSION
     Dosage: UNK
  7. CLONIDINE [Concomitant]
     Dosage: UNK
  8. WARFARIN [Concomitant]
     Dosage: UNK
  9. HYDROCHLOROTHIAZIDE [Concomitant]
     Dosage: UNK
  10. PRANDIN (REPAGLINIDE) [Concomitant]
     Indication: DIABETES MELLITUS
  11. AVANDIA [Concomitant]
     Indication: DIABETES MELLITUS
     Dosage: 2 mg, tid
     Dates: start: 1999

REACTIONS (6)
  - Cerebrovascular accident [Unknown]
  - Cerebral thrombosis [Unknown]
  - Mobility decreased [Unknown]
  - Balance disorder [Unknown]
  - Gait disturbance [Unknown]
  - Gastrointestinal motility disorder [Unknown]
